FAERS Safety Report 4755944-8 (Version None)
Quarter: 2005Q3

REPORT INFORMATION
  Report Type: 
  Country: None (occurrence: None)
  Receive Date: 20050826
  Receipt Date: 20050330
  Transmission Date: 20060218
  Serious: Yes (Hospitalization, Other)
  Sender: FDA-Public Use
  Company Number: USA-2003-0006731

PATIENT
  Age: 56 Year
  Sex: Female
  Weight: 61.2 kg

DRUGS (13)
  1. OXYCONTIN [Suspect]
     Dosage: 80 MG, BID
  2. LIMBITROL [Concomitant]
  3. SOMA [Concomitant]
  4. SYNTHROID [Concomitant]
  5. ASPIRIN [Concomitant]
  6. SERZONE [Concomitant]
  7. XANAX [Concomitant]
  8. WELLBUTRIN [Concomitant]
  9. DRAMAMINE [Concomitant]
  10. BENADRYL [Concomitant]
  11. CELEBREX [Concomitant]
  12. REMERON [Concomitant]
  13. LIBRIUM [Concomitant]

REACTIONS (31)
  - ABDOMINAL PAIN UPPER [None]
  - ABNORMAL BEHAVIOUR [None]
  - ASTHENIA [None]
  - BACK INJURY [None]
  - BACK PAIN [None]
  - COGNITIVE DISORDER [None]
  - CONDITION AGGRAVATED [None]
  - DECREASED ACTIVITY [None]
  - DECREASED APPETITE [None]
  - DEPRESSION [None]
  - DIARRHOEA [None]
  - DRUG DEPENDENCE [None]
  - DRUG WITHDRAWAL SYNDROME [None]
  - DYSPHAGIA [None]
  - EMOTIONAL DISTRESS [None]
  - FALL [None]
  - FLAT AFFECT [None]
  - HAEMATOCHEZIA [None]
  - HEADACHE [None]
  - HYPOAESTHESIA [None]
  - INADEQUATE ANALGESIA [None]
  - INSOMNIA [None]
  - MUSCLE SPASMS [None]
  - NAUSEA [None]
  - PAIN [None]
  - RASH [None]
  - SEDATION [None]
  - SINUSITIS [None]
  - UPPER RESPIRATORY TRACT INFECTION [None]
  - VOMITING [None]
  - WEIGHT DECREASED [None]
